FAERS Safety Report 8539867-4 (Version None)
Quarter: 2012Q3

REPORT INFORMATION
  Report Type: 
  Country: None (occurrence: None)
  Receive Date: 20120726
  Receipt Date: 20120723
  Transmission Date: 20120928
  Serious: No
  Sender: FDA-Public Use
  Company Number: US-PFIZER INC-2012156556

PATIENT
  Sex: Female
  Weight: 70.748 kg

DRUGS (4)
  1. NORCO [Concomitant]
     Dosage: 7.5/325MG
  2. SOMA [Concomitant]
     Dosage: 350 MG, 2X/DAY
  3. NORCO [Concomitant]
     Indication: PROCEDURAL PAIN
     Dosage: 7.5/325, AS NEEDED
  4. LYRICA [Suspect]
     Indication: NERVE INJURY
     Dosage: 75 MG, 2X/DAY
     Route: 048
     Dates: start: 20120611, end: 20120601

REACTIONS (2)
  - LETHARGY [None]
  - FEELING ABNORMAL [None]
